FAERS Safety Report 20876272 (Version 2)
Quarter: 2022Q3

REPORT INFORMATION
  Report Type: Other
  Country: JP (occurrence: None)
  Receive Date: 20220526
  Receipt Date: 20220919
  Transmission Date: 20221026
  Serious: Yes (Death)
  Sender: FDA-Public Use
  Company Number: JP-ROCHE-3103607

PATIENT
  Age: 73 Year
  Sex: Female
  Weight: 55.8 kg

DRUGS (23)
  1. RITUXAN [Suspect]
     Active Substance: RITUXIMAB
     Indication: Chronic lymphocytic leukaemia
     Route: 041
     Dates: start: 20140218, end: 20140218
  2. RITUXAN [Suspect]
     Active Substance: RITUXIMAB
     Route: 041
     Dates: start: 20140318, end: 20140318
  3. RITUXAN [Suspect]
     Active Substance: RITUXIMAB
     Route: 041
     Dates: start: 20140415, end: 20140415
  4. RITUXAN [Suspect]
     Active Substance: RITUXIMAB
     Route: 041
     Dates: start: 20140514, end: 20140514
  5. RITUXAN [Suspect]
     Active Substance: RITUXIMAB
     Route: 041
     Dates: start: 20140618, end: 20140618
  6. RITUXAN [Suspect]
     Active Substance: RITUXIMAB
     Route: 041
     Dates: start: 20140723, end: 20140723
  7. RITUXAN [Suspect]
     Active Substance: RITUXIMAB
     Route: 041
     Dates: start: 20161115, end: 20161115
  8. RITUXAN [Suspect]
     Active Substance: RITUXIMAB
     Route: 041
     Dates: start: 20161212, end: 20161212
  9. RITUXAN [Suspect]
     Active Substance: RITUXIMAB
     Route: 041
     Dates: start: 20170112, end: 20170112
  10. RITUXAN [Suspect]
     Active Substance: RITUXIMAB
     Route: 041
     Dates: start: 20170126, end: 20170126
  11. RITUXAN [Suspect]
     Active Substance: RITUXIMAB
     Route: 041
     Dates: start: 20170223, end: 20170223
  12. RITUXAN [Suspect]
     Active Substance: RITUXIMAB
     Route: 041
     Dates: start: 20170329, end: 20170329
  13. FLUDARA [Suspect]
     Active Substance: FLUDARABINE PHOSPHATE
     Indication: Chronic lymphocytic leukaemia
     Dosage: 5 DAYS X 6 COURSES) FOR THE PRIMARY DISEASE (UNTIL 20/APR/2014)
     Route: 048
     Dates: start: 20131119, end: 20140420
  14. FLUDARA [Suspect]
     Active Substance: FLUDARABINE PHOSPHATE
     Dosage: (5 DAYS X 3 COURSES) FOR THE PRIMARY DISEASE (UNTIL 13/NOV/2016)
     Route: 048
     Dates: start: 20160831, end: 20161113
  15. FLUDARA [Suspect]
     Active Substance: FLUDARABINE PHOSPHATE
     Route: 048
     Dates: start: 20170126, end: 20170130
  16. IBRUTINIB [Suspect]
     Active Substance: IBRUTINIB
     Indication: Chronic lymphocytic leukaemia
     Route: 048
     Dates: start: 20200630, end: 20201025
  17. SULFAMETHOXAZOLE\TRIMETHOPRIM [Concomitant]
     Active Substance: SULFAMETHOXAZOLE\TRIMETHOPRIM
     Indication: Infection prophylaxis
     Dosage: 1 DOSAGE FORM PER DAY
     Route: 048
     Dates: start: 20131119, end: 201503
  18. SULFAMETHOXAZOLE\TRIMETHOPRIM [Concomitant]
     Active Substance: SULFAMETHOXAZOLE\TRIMETHOPRIM
     Dosage: 1 DOSAGE FORM PER DAY
     Route: 048
     Dates: start: 20160901, end: 201803
  19. VALTREX [Concomitant]
     Active Substance: VALACYCLOVIR HYDROCHLORIDE
     Indication: Infection prophylaxis
     Route: 048
     Dates: start: 20131119, end: 201412
  20. VALTREX [Concomitant]
     Active Substance: VALACYCLOVIR HYDROCHLORIDE
     Route: 048
     Dates: start: 20160919, end: 201803
  21. NEXIUM [Concomitant]
     Active Substance: ESOMEPRAZOLE MAGNESIUM
     Indication: Gastrooesophageal reflux disease
     Dates: start: 20131211, end: 20201020
  22. ACYCLOVIR [Concomitant]
     Active Substance: ACYCLOVIR
     Indication: Infection prophylaxis
     Route: 048
     Dates: start: 20200630, end: 20201025
  23. SULFAMETHOXAZOLE\TRIMETHOPRIM [Concomitant]
     Active Substance: SULFAMETHOXAZOLE\TRIMETHOPRIM
     Indication: Infection prophylaxis
     Dosage: 1 DOSAGE FORM
     Route: 048
     Dates: start: 20200630, end: 20201025

REACTIONS (2)
  - Disseminated cryptococcosis [Fatal]
  - Sinusitis [Recovering/Resolving]

NARRATIVE: CASE EVENT DATE: 20201026
